FAERS Safety Report 6892948-3 (Version None)
Quarter: 2010Q3

REPORT INFORMATION
  Report Type: 
  Country: None (occurrence: None)
  Receive Date: 20100731
  Receipt Date: 20081120
  Transmission Date: 20110219
  Serious: No
  Sender: FDA-Public Use
  Company Number: US-PFIZER INC-2008099925

PATIENT
  Age: 64 Year
  Sex: Female

DRUGS (1)
  1. NORVASC [Suspect]

REACTIONS (2)
  - DIZZINESS [None]
  - OEDEMA PERIPHERAL [None]
